FAERS Safety Report 23351829 (Version 1)
Quarter: 2023Q4

REPORT INFORMATION
  Report Type: Spontaneous
  Country: US (occurrence: US)
  Receive Date: 20231229
  Receipt Date: 20231229
  Transmission Date: 20240110
  Serious: Yes (Death, Life-Threatening, Hospitalization, Other)
  Sender: FDA-Public Use
  Company Number: None

PATIENT
  Age: 53 Year
  Sex: Male

DRUGS (8)
  1. METHYLPREDNISOLONE [Suspect]
     Active Substance: METHYLPREDNISOLONE
     Indication: Transplant rejection
     Dosage: UNK
     Route: 042
  2. METHYLPREDNISOLONE [Suspect]
     Active Substance: METHYLPREDNISOLONE
     Indication: Immunosuppressant drug therapy
     Dosage: UNK
     Dates: start: 2022, end: 2022
  3. ANTI-THYMOCYTE GLOBULIN (RABBIT) NOS [Suspect]
     Active Substance: LAPINE T-LYMPHOCYTE IMMUNE GLOBULIN
     Indication: Immunosuppressant drug therapy
     Dosage: 2 MG/KG, QD
  4. ANTI-THYMOCYTE GLOBULIN (RABBIT) NOS [Suspect]
     Active Substance: LAPINE T-LYMPHOCYTE IMMUNE GLOBULIN
     Indication: Transplant rejection
     Dosage: 3 DOSES OF 150 MG OR 6 MG/KG 150 MG 3 TOTAL
     Dates: start: 2022, end: 2022
  5. MYCOPHENOLATE MOFETIL [Suspect]
     Active Substance: MYCOPHENOLATE MOFETIL
     Indication: Immunosuppressant drug therapy
     Dosage: 1000 MG TWICE DAILY 1000 MG Q12H
     Dates: start: 2022
  6. TACROLIMUS [Suspect]
     Active Substance: TACROLIMUS
     Indication: Immunosuppressant drug therapy
     Dosage: 11 MG, BID
     Dates: start: 2022
  7. SULFAMETHOXAZOLE AND TRIMETHOPRIM [Concomitant]
     Active Substance: SULFAMETHOXAZOLE\TRIMETHOPRIM
     Indication: Prophylaxis
     Dosage: UNK
     Dates: start: 2022
  8. VALGANCICLOVIR [Concomitant]
     Active Substance: VALGANCICLOVIR
     Indication: Prophylaxis
     Dosage: UNK
     Dates: start: 2022

REACTIONS (36)
  - Cardiac arrest [Fatal]
  - Bradycardia [Fatal]
  - Cardiac infection [Fatal]
  - Central nervous system viral infection [Fatal]
  - Haematological infection [Fatal]
  - Coagulopathy [Fatal]
  - Haematemesis [Fatal]
  - Ulcer [Fatal]
  - Monkeypox [Fatal]
  - Pneumonia [Fatal]
  - Splenic infection viral [Fatal]
  - Respiratory failure [Fatal]
  - Encephalopathy [Fatal]
  - Lactic acidosis [Fatal]
  - Acute hepatic failure [Fatal]
  - Hepatic infection [Fatal]
  - Hepatic necrosis [Fatal]
  - Hyperbilirubinaemia [Fatal]
  - Flank pain [Fatal]
  - Kidney infection [Fatal]
  - Oesophageal infection [Fatal]
  - Acute oesophageal mucosal lesion [Fatal]
  - Wound secretion [Fatal]
  - Multiple organ dysfunction syndrome [Fatal]
  - Orchitis [Fatal]
  - Lymph gland infection [Fatal]
  - Shock [Fatal]
  - Cytomegalovirus viraemia [Fatal]
  - Urinary tract infection enterococcal [Fatal]
  - Bacteraemia [Fatal]
  - Polyomavirus viraemia [Fatal]
  - Eczema [Fatal]
  - Rash papular [Fatal]
  - Skin lesion [Fatal]
  - Skin necrosis [Fatal]
  - Acanthosis [Fatal]
